FAERS Safety Report 9963957 (Version 2)
Quarter: 2014Q1

REPORT INFORMATION
  Report Type: Report from Study
  Country: US (occurrence: US)
  Receive Date: 20140305
  Receipt Date: 20140305
  Transmission Date: 20141002
  Serious: Yes (Other)
  Sender: FDA-Public Use
  Company Number: US-ABBVIE-14P-163-1199518-00

PATIENT
  Sex: Female

DRUGS (10)
  1. HUMIRA [Suspect]
     Indication: RHEUMATOID ARTHRITIS
     Dates: start: 2009
  2. METHOTREXATE [Concomitant]
     Indication: RHEUMATOID ARTHRITIS
     Route: 048
  3. LYRICA [Concomitant]
     Indication: FIBROMYALGIA
     Route: 048
  4. CYMBALTA [Concomitant]
     Indication: FIBROMYALGIA
     Route: 048
  5. MONOPRIL [Concomitant]
     Indication: HYPERTENSION
     Route: 048
  6. NORVASC [Concomitant]
     Indication: HYPERTENSION
     Route: 048
  7. LIPITOR [Concomitant]
     Indication: BLOOD CHOLESTEROL
     Route: 048
  8. AMARYL [Concomitant]
     Indication: DIABETES MELLITUS
     Route: 048
  9. METFORMIN [Concomitant]
     Indication: DIABETES MELLITUS
     Route: 048
  10. ONGLYZA [Concomitant]
     Indication: DIABETES MELLITUS
     Route: 048

REACTIONS (10)
  - Osteoarthritis [Not Recovered/Not Resolved]
  - Rheumatoid arthritis [Not Recovered/Not Resolved]
  - Sinusitis [Unknown]
  - Pyrexia [Unknown]
  - Local swelling [Unknown]
  - Arthralgia [Unknown]
  - Joint stiffness [Unknown]
  - Arthritis [Unknown]
  - Arthralgia [Unknown]
  - Joint swelling [Unknown]
